FAERS Safety Report 7263796-X (Version None)
Quarter: 2011Q1

REPORT INFORMATION
  Report Type: 
  Country: None (occurrence: None)
  Receive Date: 20110130
  Receipt Date: 20101028
  Transmission Date: 20110831
  Serious: No
  Sender: FDA-Public Use
  Company Number: US-ABBOTT-10P-163-0682380-00

PATIENT
  Sex: Male
  Weight: 124.85 kg

DRUGS (8)
  1. PREDNISONE [Concomitant]
     Indication: CROHN'S DISEASE
     Dates: start: 20100801
  2. LISINOPRIL [Concomitant]
     Indication: HYPERTENSION
  3. AMLODIPINE [Concomitant]
     Indication: HYPERTENSION
  4. HUMIRA [Suspect]
     Indication: RHEUMATOID ARTHRITIS
     Dates: start: 20100201, end: 20100801
  5. HUMIRA [Suspect]
     Indication: CROHN'S DISEASE
  6. ASACOL HD [Concomitant]
     Indication: CROHN'S DISEASE
  7. METOPROLOL [Concomitant]
     Indication: HYPERTENSION
  8. PREDNISONE [Concomitant]
     Indication: RHEUMATOID ARTHRITIS

REACTIONS (17)
  - RECTAL HAEMORRHAGE [None]
  - BLOOD PRESSURE ABNORMAL [None]
  - CONFUSIONAL STATE [None]
  - ABDOMINAL PAIN [None]
  - FATIGUE [None]
  - CROHN'S DISEASE [None]
  - VISION BLURRED [None]
  - ASTHENIA [None]
  - DECREASED APPETITE [None]
  - JOINT STIFFNESS [None]
  - DYSPNOEA [None]
  - ARTHRALGIA [None]
  - MUSCLE SPASMS [None]
  - CONSTIPATION [None]
  - RHEUMATOID ARTHRITIS [None]
  - ARTHROPATHY [None]
  - HEADACHE [None]
